FAERS Safety Report 6088590-7 (Version None)
Quarter: 2009Q1

REPORT INFORMATION
  Report Type: 
  Country: None (occurrence: None)
  Receive Date: 20090224
  Receipt Date: 20090213
  Transmission Date: 20090719
  Serious: Yes (Hospitalization)
  Sender: FDA-Public Use
  Company Number: ES-BIOGENIDEC-2009BI002791

PATIENT
  Age: 26 Year
  Sex: Female
  Weight: 47 kg

DRUGS (2)
  1. TYSABRI [Suspect]
     Indication: MULTIPLE SCLEROSIS
     Route: 042
     Dates: start: 20080925, end: 20081202
  2. NEXIUM [Concomitant]

REACTIONS (1)
  - TUBERCULOSIS [None]
